FAERS Safety Report 23380578 (Version 2)
Quarter: 2024Q1

REPORT INFORMATION
  Report Type: Report from Study
  Country: US (occurrence: US)
  Receive Date: 20240109
  Receipt Date: 20240313
  Transmission Date: 20240410
  Serious: Yes (Hospitalization)
  Sender: FDA-Public Use
  Company Number: US-ABBVIE-5575256

PATIENT
  Sex: Male
  Weight: 143.7 kg

DRUGS (15)
  1. SKYRIZI [Suspect]
     Active Substance: RISANKIZUMAB-RZAA
     Indication: Psoriasis
     Dosage: FORM STRENGTH UNITS:150 MILLIGRAM?WEEK 0
     Route: 058
     Dates: start: 202305, end: 202305
  2. SKYRIZI [Suspect]
     Active Substance: RISANKIZUMAB-RZAA
     Dosage: FORM STRENGTH UNITS:150 MILLIGRAM?WEEK 4
     Route: 058
     Dates: start: 20230616, end: 20230616
  3. SKYRIZI [Suspect]
     Active Substance: RISANKIZUMAB-RZAA
     Dosage: FORM STRENGTH UNITS:150 MILLIGRAM
     Route: 058
     Dates: start: 2023
  4. SKYRIZI [Suspect]
     Active Substance: RISANKIZUMAB-RZAA
     Dosage: FORM STRENGTH UNITS:150 MILLIGRAM?THERAPY END DATE- 2023
     Route: 058
     Dates: start: 202305
  5. Calcipotriene (DOVONEX) [Concomitant]
     Indication: Product used for unknown indication
     Dosage: FORM STRENGTH: 0.005 %  APPLY SPARINGLY TWICE A DAY TO AFFECTED AREA X 2 WEEKS / MONTH ALTERNATIN...
  6. WEGOVY [Concomitant]
     Active Substance: SEMAGLUTIDE
     Indication: Product used for unknown indication
     Dosage: 1 MG/0.5 ML INJECT 1 MG SUBCUTANEOUSLY ONE TIME EACH WEEK. TAKE WEEKLY FOR WEEKS 9-12
     Route: 058
  7. COREG [Concomitant]
     Active Substance: CARVEDILOL
     Indication: Product used for unknown indication
     Route: 048
  8. AMLODIPINE [Concomitant]
     Active Substance: AMLODIPINE BESYLATE
     Indication: Product used for unknown indication
     Dosage: FORM STRENGTH: 5 MILLIGRAM
     Route: 048
  9. TEMOVATE [Concomitant]
     Active Substance: CLOBETASOL PROPIONATE
     Indication: Product used for unknown indication
     Dosage: FORM STRENGTH: 0.05 % APPLY SPARINGLY TWICE A DAY AS NEEDED TO AFFECTED AREAS ON THE BODY AND EXT...
  10. POTASSIUM CHLORIDE [Concomitant]
     Active Substance: POTASSIUM CHLORIDE
     Indication: Product used for unknown indication
     Dosage: (MICRO-K) 8 MEQ SR CAPSULE
     Route: 048
  11. OZEMPIC [Concomitant]
     Active Substance: SEMAGLUTIDE
     Indication: Product used for unknown indication
     Dosage: 0.25 MG OR 0.5 MG (2 MQ/3 ML) INJECT 0.25 MG UNDER THE SKIN EVERY 7 DAYS FOR 28 DAYS. THEN START ...
  12. LISINOPRIL [Concomitant]
     Active Substance: LISINOPRIL
     Indication: Product used for unknown indication
     Dosage: FORM STRENGTH: 40 MG
     Route: 048
  13. WEGOVY [Concomitant]
     Active Substance: SEMAGLUTIDE
     Indication: Product used for unknown indication
     Dosage: 0.5 MG/0.5 ML --- INJECT 0.5 MG SUBCUTANEOUSLY ONE TIME EACH WEEK. TAKE WEEKLY FOR WEEKS 5-8
     Route: 058
  14. ACETAMINOPHEN [Concomitant]
     Active Substance: ACETAMINOPHEN
     Indication: Product used for unknown indication
     Dosage: FORM STRENGTH: 325  MILLIGRAM
     Route: 048
  15. FUROSEMIDE [Concomitant]
     Active Substance: FUROSEMIDE
     Indication: Product used for unknown indication
     Dosage: FORM STRENGTH: 40 MG
     Route: 048

REACTIONS (4)
  - Dyspnoea [Recovering/Resolving]
  - Erythema [Recovered/Resolved]
  - Skin burning sensation [Recovered/Resolved]
  - Heart rate increased [Recovering/Resolving]

NARRATIVE: CASE EVENT DATE: 20230101
